FAERS Safety Report 21047748 (Version 1)
Quarter: 2022Q3

REPORT INFORMATION
  Report Type: Spontaneous
  Country: US (occurrence: US)
  Receive Date: 20220706
  Receipt Date: 20220706
  Transmission Date: 20221027
  Serious: No
  Sender: FDA-Public Use
  Company Number: US-KARYOPHARM-2022KPT000676

PATIENT

DRUGS (8)
  1. XPOVIO [Suspect]
     Active Substance: SELINEXOR
     Indication: Brain neoplasm malignant
     Dosage: 80 MG, WEEKLY
     Route: 048
     Dates: start: 20220614
  2. ZOFRAN [Concomitant]
     Active Substance: ONDANSETRON HYDROCHLORIDE
  3. OMEPRAZOLE [Concomitant]
     Active Substance: OMEPRAZOLE
  4. ATORVASTATIN [Concomitant]
     Active Substance: ATORVASTATIN
  5. DEXAMETHASONE [Concomitant]
     Active Substance: DEXAMETHASONE
  6. GLEOSTINE [Concomitant]
     Active Substance: LOMUSTINE
  7. LEVETIRACETAM [Concomitant]
     Active Substance: LEVETIRACETAM
  8. GLIPIZIDE AND METFORMIN HCL [Concomitant]
     Active Substance: GLIPIZIDE\METFORMIN HYDROCHLORIDE

REACTIONS (2)
  - Hiccups [Unknown]
  - Off label use [Unknown]

NARRATIVE: CASE EVENT DATE: 20220614
